FAERS Safety Report 7103287-X (Version None)
Quarter: 2010Q4

REPORT INFORMATION
  Report Type: 
  Country: None (occurrence: None)
  Receive Date: 20101115
  Receipt Date: 20101109
  Transmission Date: 20110411
  Serious: Yes (Other)
  Sender: FDA-Public Use
  Company Number: US-MYLANLABS-2010S1020450

PATIENT
  Age: 22 Year
  Sex: Female

DRUGS (1)
  1. AMNESTEEM [Suspect]
     Route: 048
     Dates: start: 20100720, end: 20101001

REACTIONS (1)
  - DRUG EXPOSURE DURING PREGNANCY [None]
